FAERS Safety Report 15347917 (Version 3)
Quarter: 2018Q4

REPORT INFORMATION
  Report Type: Report from Study
  Country: CA (occurrence: CA)
  Receive Date: 20180904
  Receipt Date: 20181102
  Transmission Date: 20190204
  Serious: Yes (Hospitalization, Other)
  Sender: FDA-Public Use
  Company Number: CA-BAYER-2018-155395

PATIENT
  Age: 67 Year
  Sex: Male

DRUGS (1)
  1. STIVARGA [Suspect]
     Active Substance: REGORAFENIB
     Indication: COLORECTAL CANCER METASTATIC
     Dosage: 160 MG, QD
     Route: 048
     Dates: start: 20180731, end: 2018

REACTIONS (9)
  - Pain [Not Recovered/Not Resolved]
  - Renal impairment [Not Recovered/Not Resolved]
  - Hospitalisation [None]
  - Urinary tract infection [Recovered/Resolved]
  - Adverse drug reaction [None]
  - Pain in extremity [None]
  - Renal disorder [None]
  - Vomiting [Unknown]
  - Tremor [Unknown]

NARRATIVE: CASE EVENT DATE: 20180814
